FAERS Safety Report 11021859 (Version 1)
Quarter: 2015Q2

REPORT INFORMATION
  Report Type: Spontaneous
  Country: GB (occurrence: GB)
  Receive Date: 20150413
  Receipt Date: 20150413
  Transmission Date: 20150821
  Serious: Yes (Other)
  Sender: FDA-Public Use
  Company Number: GB-BAYER-2015-117396

PATIENT
  Age: 25 Year
  Sex: Female

DRUGS (1)
  1. MIRENA [Suspect]
     Active Substance: LEVONORGESTREL
     Dosage: 20 MCG/24HR, CONT
     Route: 015
     Dates: start: 2010, end: 2013

REACTIONS (9)
  - Loss of consciousness [None]
  - Complication of device insertion [None]
  - Procedural pain [None]
  - Procedural dizziness [None]
  - Libido decreased [Recovered/Resolved]
  - Irritability [Recovering/Resolving]
  - Anger [Recovering/Resolving]
  - Premenstrual syndrome [Recovering/Resolving]
  - Emotional disorder [Recovering/Resolving]

NARRATIVE: CASE EVENT DATE: 2010
